FAERS Safety Report 7074100-4 (Version None)
Quarter: 2010Q4

REPORT INFORMATION
  Report Type: 
  Country: None (occurrence: None)
  Receive Date: 20101029
  Receipt Date: 20101019
  Transmission Date: 20110411
  Serious: Yes (Hospitalization)
  Sender: FDA-Public Use
  Company Number: PHHY2010FR51824

PATIENT

DRUGS (3)
  1. CGP 57148B T35717+ [Suspect]
     Indication: CHRONIC MYELOID LEUKAEMIA
     Dosage: 400 MG DAILY
     Route: 048
  2. TAREG [Concomitant]
     Indication: HYPERTENSION
  3. LODOZ [Concomitant]
     Indication: HYPERTENSION

REACTIONS (2)
  - HIP ARTHROPLASTY [None]
  - POST PROCEDURAL HAEMORRHAGE [None]
